FAERS Safety Report 7948257-4 (Version None)
Quarter: 2011Q4

REPORT INFORMATION
  Report Type: 
  Country: None (occurrence: None)
  Receive Date: 20111130
  Receipt Date: 20111122
  Transmission Date: 20120403
  Serious: No
  Sender: FDA-Public Use
  Company Number: US-PFIZER INC-2011245672

PATIENT
  Sex: Female
  Weight: 86.168 kg

DRUGS (4)
  1. HYDROCHLOROTHIAZIDE [Concomitant]
     Indication: BLOOD PRESSURE ABNORMAL
     Dosage: 25 MG, DAILY
  2. IBUPROFEN (ADVIL) [Suspect]
     Indication: MUSCULOSKELETAL PAIN
     Dosage: 200 MG, DAILY
     Dates: start: 20110101, end: 20111001
  3. ADVIL PM [Suspect]
     Indication: MUSCULOSKELETAL PAIN
     Dosage: 200 MG, DAILY
     Route: 048
     Dates: start: 20111010
  4. KLOR-CON [Concomitant]
     Indication: BLOOD POTASSIUM DECREASED
     Dosage: UNK

REACTIONS (1)
  - DRUG INEFFECTIVE [None]
